FAERS Safety Report 18838094 (Version 1)
Quarter: 2021Q1

REPORT INFORMATION
  Report Type: Other
  Country: IL (occurrence: IL)
  Receive Date: 20210203
  Receipt Date: 20210203
  Transmission Date: 20210419
  Serious: No
  Sender: FDA-Public Use
  Company Number: IL-ROCHE-2762335

PATIENT
  Age: 51 Year
  Sex: Male

DRUGS (4)
  1. TYSABRI [Concomitant]
     Active Substance: NATALIZUMAB
  2. TECFIDERA [Concomitant]
     Active Substance: DIMETHYL FUMARATE
  3. OCREVUS [Suspect]
     Active Substance: OCRELIZUMAB
     Indication: RELAPSING-REMITTING MULTIPLE SCLEROSIS
     Dosage: CONTINUED
     Route: 042
     Dates: start: 20180430
  4. AVONEX [Concomitant]
     Active Substance: INTERFERON BETA-1A

REACTIONS (3)
  - Asthenia [Recovered/Resolved]
  - Coronavirus test positive [Recovered/Resolved]
  - Cough [Recovered/Resolved]

NARRATIVE: CASE EVENT DATE: 20210124
